FAERS Safety Report 24524234 (Version 1)
Quarter: 2024Q4

REPORT INFORMATION
  Report Type: Spontaneous
  Country: CA (occurrence: CA)
  Receive Date: 20241018
  Receipt Date: 20241018
  Transmission Date: 20250114
  Serious: Yes (Other)
  Sender: TEVA
  Company Number: CA-TEVA-VS-3252769

PATIENT
  Age: 41 Year
  Sex: Male

DRUGS (5)
  1. DASATINIB [Suspect]
     Active Substance: DASATINIB
     Indication: Chronic myeloid leukaemia
     Route: 065
  2. TACROLIMUS [Suspect]
     Active Substance: TACROLIMUS
     Indication: Immunosuppression
     Route: 065
  3. PREDNISONE [Suspect]
     Active Substance: PREDNISONE
     Indication: Immunosuppression
     Route: 065
  4. MESALAMINE [Suspect]
     Active Substance: MESALAMINE
     Indication: Prophylaxis against transplant rejection
     Route: 065
  5. URSODIOL [Suspect]
     Active Substance: URSODIOL
     Indication: Prophylaxis against transplant rejection
     Route: 065

REACTIONS (7)
  - Philadelphia positive chronic myeloid leukaemia [Recovered/Resolved]
  - Thrombocytopenia [Recovered/Resolved]
  - Loss of personal independence in daily activities [Recovered/Resolved]
  - Pain [Recovered/Resolved]
  - Off label use [Recovered/Resolved]
  - General physical health deterioration [Recovered/Resolved]
  - Product use in unapproved indication [Recovered/Resolved]
